FAERS Safety Report 10154153 (Version 1)
Quarter: 2014Q2

REPORT INFORMATION
  Report Type: Spontaneous
  Country: US (occurrence: US)
  Receive Date: 20140506
  Receipt Date: 20140506
  Transmission Date: 20141212
  Serious: No
  Sender: FDA-Public Use
  Company Number: US-JNJFOC-20140418606

PATIENT
  Age: 71 Year
  Sex: Female
  Weight: 85.28 kg

DRUGS (1)
  1. SANDOZ FENTANYL TRANSDERMAL SYSTEM [Suspect]
     Indication: BACK PAIN
     Route: 062
     Dates: start: 20140423

REACTIONS (2)
  - Wrong technique in drug usage process [Not Recovered/Not Resolved]
  - Drug ineffective [Not Recovered/Not Resolved]
